FAERS Safety Report 8267843-8 (Version None)
Quarter: 2012Q2

REPORT INFORMATION
  Report Type: 
  Country: None (occurrence: None)
  Receive Date: 20120409
  Receipt Date: 20120329
  Transmission Date: 20120825
  Serious: Yes (Death, Hospitalization)
  Sender: FDA-Public Use
  Company Number: JP-AMGEN-JPNCT2012015224

PATIENT
  Age: 62 Year
  Sex: Male
  Weight: 85 kg

DRUGS (16)
  1. MYSER [Concomitant]
     Dosage: UNK
     Route: 062
  2. PANITUMUMAB [Suspect]
     Indication: COLORECTAL CANCER
     Dosage: 6 MG/KG, Q2WK
     Route: 041
     Dates: start: 20101012, end: 20110125
  3. PANITUMUMAB [Suspect]
     Dosage: 6 MG/KG, Q2WK
     Route: 041
     Dates: start: 20110222, end: 20110322
  4. RINDERON VG [Concomitant]
     Dosage: UNK
     Route: 062
  5. ALLOPURINOL [Concomitant]
     Dosage: UNK
     Route: 048
  6. WARFARIN SODIUM [Suspect]
     Dosage: UNK
     Route: 048
  7. URALYT U [Concomitant]
     Dosage: UNK
     Route: 048
  8. LANDEL [Concomitant]
     Dosage: UNK
     Route: 048
  9. LOCOID [Concomitant]
     Dosage: UNK
     Route: 062
  10. URINORM [Concomitant]
     Dosage: UNK
     Route: 048
  11. CRESTOR [Concomitant]
     Dosage: UNK
     Route: 048
  12. FERROUS SULFATE TAB [Concomitant]
     Dosage: UNK
     Route: 048
  13. HIRUDOID [Concomitant]
     Dosage: UNK
     Route: 062
  14. DIOVAN HCT [Concomitant]
     Dosage: UNK
     Route: 048
  15. ALDACTONE [Concomitant]
     Dosage: UNK
     Route: 048
  16. ADALAT CC [Concomitant]
     Dosage: UNK
     Route: 048

REACTIONS (8)
  - CELLULITIS [None]
  - PARONYCHIA [None]
  - HYPOCALCAEMIA [None]
  - DIVERTICULUM INTESTINAL HAEMORRHAGIC [None]
  - DRY SKIN [None]
  - ACNE [None]
  - COLORECTAL CANCER [None]
  - HYPOMAGNESAEMIA [None]
